FAERS Safety Report 23699949 (Version 1)
Quarter: 2024Q2

REPORT INFORMATION
  Report Type: Spontaneous
  Country: IT (occurrence: IT)
  Receive Date: 20240403
  Receipt Date: 20240403
  Transmission Date: 20240716
  Serious: Yes (Other)
  Sender: FDA-Public Use
  Company Number: IT-PBT-009195

PATIENT
  Age: 38 Year
  Sex: Female

DRUGS (2)
  1. TACROLIMUS [Suspect]
     Active Substance: TACROLIMUS
     Indication: Prophylaxis against transplant rejection
     Route: 065
     Dates: start: 2023, end: 2023
  2. TACROLIMUS [Suspect]
     Active Substance: TACROLIMUS
     Indication: Prophylaxis against transplant rejection
     Dosage: DOSE REDUCED
     Route: 065
     Dates: start: 2023

REACTIONS (2)
  - Neurotoxicity [Recovering/Resolving]
  - Liver transplant rejection [Unknown]

NARRATIVE: CASE EVENT DATE: 20230101
